FAERS Safety Report 4847632-4 (Version None)
Quarter: 2005Q4

REPORT INFORMATION
  Report Type: 
  Country: None (occurrence: None)
  Receive Date: 20051205
  Receipt Date: 20051121
  Transmission Date: 20060501
  Serious: Yes (Hospitalization)
  Sender: FDA-Public Use
  Company Number: 2005158721

PATIENT
  Age: 75 Year
  Sex: Male

DRUGS (7)
  1. CLINDAMYCIN HCL [Suspect]
     Indication: OSTEOMYELITIS
     Dosage: (300 MG, D), ORAL
     Route: 048
     Dates: start: 20050929, end: 20051012
  2. ZOCOR [Concomitant]
  3. DIURAL (FUROSEMIDE) [Concomitant]
  4. IMOVANE (ZOPICLONE) [Concomitant]
  5. CENTYL (BENDROFLUMETHIAZIDE) [Concomitant]
  6. ZESTRIL [Concomitant]
  7. ALBYL (ACETYLSALICYLIC ACID) [Concomitant]

REACTIONS (3)
  - FLUSHING [None]
  - OEDEMA [None]
  - PHARYNGEAL ULCERATION [None]
